FAERS Safety Report 12464193 (Version 2)
Quarter: 2016Q3

REPORT INFORMATION
  Report Type: Spontaneous
  Country: US (occurrence: US)
  Receive Date: 20160614
  Receipt Date: 20160707
  Transmission Date: 20161109
  Serious: Yes (Hospitalization, Other)
  Sender: FDA-Public Use
  Company Number: US-GLAXOSMITHKLINE-US2016GSK083035

PATIENT
  Age: 73 Year
  Sex: Male

DRUGS (15)
  1. COREG [Suspect]
     Active Substance: CARVEDILOL
     Indication: ATRIAL FIBRILLATION
     Dosage: 12.5 MG, BID
     Route: 048
  2. LISINOPRIL. [Concomitant]
     Active Substance: LISINOPRIL
     Dosage: 40 MG, QD
     Route: 048
  3. VIAGRA [Concomitant]
     Active Substance: SILDENAFIL CITRATE
     Indication: ERECTILE DYSFUNCTION
     Dosage: 100 MG, PRN
  4. ELIQUIS [Suspect]
     Active Substance: APIXABAN
     Indication: ATRIAL FIBRILLATION
     Dosage: 5 MG, BID
     Route: 048
     Dates: start: 20151113, end: 20151225
  5. WHEY [Concomitant]
     Active Substance: WHEY
     Dosage: 1 DF, QD
     Route: 048
  6. ASPIRIN. [Concomitant]
     Active Substance: ASPIRIN
     Dosage: 81 MG, QD
     Route: 048
  7. FISH OIL [Concomitant]
     Active Substance: FISH OIL
     Dosage: 1000 MG, QD
     Route: 048
  8. SAW PALMETTO [Concomitant]
     Active Substance: SAW PALMETTO
     Dosage: 1 DF, QD
     Route: 048
  9. TAMSULOSIN HYDROCHLORIDE. [Concomitant]
     Active Substance: TAMSULOSIN HYDROCHLORIDE
     Dosage: 0.4 MG, QD
  10. SPIRIVA [Concomitant]
     Active Substance: TIOTROPIUM BROMIDE MONOHYDRATE
     Dosage: 1 DF, QD
     Route: 055
  11. LECITHIN [Concomitant]
     Active Substance: LECITHIN
     Dosage: 1 G, QD
     Route: 048
  12. VITAMIN E [Concomitant]
     Active Substance: .ALPHA.-TOCOPHEROL
     Dosage: 400 IU, QD
     Route: 048
  13. GARLIC. [Concomitant]
     Active Substance: GARLIC
     Dosage: 200 MG, QD
     Route: 048
  14. NONI JUICE [Concomitant]
     Active Substance: NONI FRUIT JUICE
     Dosage: 3000 MG, QD
     Route: 048
  15. SOTALOL HYDROCHLORIDE. [Concomitant]
     Active Substance: SOTALOL HYDROCHLORIDE
     Dosage: 120 MG, BID
     Route: 048

REACTIONS (11)
  - Dyspnoea [Unknown]
  - Systolic dysfunction [Unknown]
  - Cerebrovascular accident [Unknown]
  - Haemorrhagic transformation stroke [Unknown]
  - Transaminases increased [Recovering/Resolving]
  - Blood creatine phosphokinase increased [Unknown]
  - Aphasia [Unknown]
  - Bradycardia [Unknown]
  - Tachycardia [Unknown]
  - Hypotonia [Unknown]
  - Atrial fibrillation [Unknown]

NARRATIVE: CASE EVENT DATE: 201511
